FAERS Safety Report 5017699-1 (Version None)
Quarter: 2006Q2

REPORT INFORMATION
  Report Type: 
  Country: None (occurrence: None)
  Receive Date: 20060605
  Receipt Date: 20060525
  Transmission Date: 20061013
  Serious: Yes (Other)
  Sender: FDA-Public Use
  Company Number: PHBS2006ES07681

PATIENT
  Sex: Male

DRUGS (5)
  1. SINEMET [Concomitant]
     Indication: PARKINSON'S DISEASE
     Dosage: 750 MG/D
     Route: 048
  2. ARICEPT [Concomitant]
     Route: 065
  3. MIRAPEXIN [Concomitant]
     Route: 065
  4. STALEVO 100 [Suspect]
     Indication: PARKINSON'S DISEASE
     Dosage: 50 MG, TID
     Route: 065
     Dates: start: 20060509, end: 20060510
  5. STALEVO 100 [Suspect]
     Dosage: 100 MG, TID
     Route: 065
     Dates: start: 20060511, end: 20060520

REACTIONS (1)
  - BLOOD CREATINE PHOSPHOKINASE INCREASED [None]
